FAERS Safety Report 7256462-8 (Version None)
Quarter: 2011Q1

REPORT INFORMATION
  Report Type: 
  Country: None (occurrence: None)
  Receive Date: 20110129
  Receipt Date: 20100805
  Transmission Date: 20110831
  Serious: No
  Sender: FDA-Public Use
  Company Number: US-ABBOTT-10P-163-0661746-00

PATIENT
  Age: 53 Year
  Sex: Male

DRUGS (7)
  1. TRIAMCINOLONE ACETONIDE [Concomitant]
     Indication: PSORIASIS
     Route: 061
  2. COUMADIN [Concomitant]
     Indication: PRODUCT USED FOR UNKNOWN INDICATION
     Dosage: 6 DAYS A WEEK 3MG THE OTHER DAY
  3. LOVASTATIN [Concomitant]
     Indication: BLOOD CHOLESTEROL
  4. LISINOPRIL [Concomitant]
     Indication: BLOOD PRESSURE
  5. DIVALPROEX SODIUM [Concomitant]
     Indication: BIPOLAR DISORDER
  6. HUMIRA [Suspect]
     Indication: PSORIASIS
     Dates: start: 20100501, end: 20100701
  7. LAMISIL [Concomitant]
     Indication: FUNGAL INFECTION

REACTIONS (1)
  - PSORIASIS [None]
